FAERS Safety Report 4284877-9 (Version None)
Quarter: 2004Q1

REPORT INFORMATION
  Report Type: 
  Country: None (occurrence: None)
  Receive Date: 20040202
  Receipt Date: 20030328
  Transmission Date: 20041129
  Serious: Yes (Other)
  Sender: FDA-Public Use
  Company Number: DSA_70088_2003

PATIENT
  Sex: Female

DRUGS (4)
  1. TERBUTALINE SULFATE [Suspect]
     Indication: TOCOLYSIS
     Dosage: 250 MCG QS SC
     Route: 058
  2. MAGNESIUM SULFATE [Suspect]
     Indication: TOCOLYSIS
     Dosage: 5 G ONCE PU
  3. MAGNESIUM SULFATE [Suspect]
     Indication: TOCOLYSIS
     Dosage: 5 G Q2HR PU
  4. INDOMETHACIN [Suspect]
     Indication: TOCOLYSIS
     Dosage: 50 MG Q6HR RC
     Route: 054

REACTIONS (2)
  - COMPLICATIONS OF MATERNAL EXPOSURE TO THERAPEUTIC DRUGS [None]
  - PULMONARY OEDEMA [None]
